FAERS Safety Report 16361981 (Version 1)
Quarter: 2019Q2

REPORT INFORMATION
  Report Type: Spontaneous
  Country: US (occurrence: US)
  Receive Date: 20190419
  Receipt Date: 20190419
  Transmission Date: 20190711
  Serious: Yes (Hospitalization)
  Sender: FDA-Public Use
  Company Number: None

PATIENT
  Sex: 0

DRUGS (4)
  1. ALPRAZOLAM. [Concomitant]
     Active Substance: ALPRAZOLAM
  2. XOLAIR [Suspect]
     Active Substance: OMALIZUMAB
  3. ALBUTEROL NEB [Concomitant]
     Active Substance: ALBUTEROL
  4. TRIAMCINOLONE [Concomitant]
     Active Substance: TRIAMCINOLONE

REACTIONS (1)
  - Therapy cessation [None]
